FAERS Safety Report 8378990-4 (Version None)
Quarter: 2012Q2

REPORT INFORMATION
  Report Type: 
  Country: None (occurrence: None)
  Receive Date: 20120522
  Receipt Date: 20120522
  Transmission Date: 20120825
  Serious: Yes (Other)
  Sender: FDA-Public Use
  Company Number: None

PATIENT
  Age: 64 Year
  Sex: Female
  Weight: 111.1313 kg

DRUGS (2)
  1. MORPHINE [Suspect]
     Indication: BACK PAIN
     Dosage: 15MG. TWICE A DAY ORAL SOMETIMES 315MG TABS/DAY ORAL
     Route: 048
     Dates: start: 19970501
  2. MORPHINE [Suspect]
     Indication: SURGERY
     Dosage: 15MG. TWICE A DAY ORAL SOMETIMES 315MG TABS/DAY ORAL
     Route: 048
     Dates: start: 19970501

REACTIONS (8)
  - DYSPNOEA [None]
  - BREAKTHROUGH PAIN [None]
  - HYPOAESTHESIA [None]
  - DYSURIA [None]
  - HYPERHIDROSIS [None]
  - PRURITUS [None]
  - PAIN IN EXTREMITY [None]
  - DIARRHOEA [None]
